FAERS Safety Report 9668471 (Version 2)
Quarter: 2013Q4

REPORT INFORMATION
  Report Type: Spontaneous
  Country: IT (occurrence: IT)
  Receive Date: 20131105
  Receipt Date: 20131203
  Transmission Date: 20140711
  Serious: Yes (Hospitalization)
  Sender: FDA-Public Use
  Company Number: IT-ROCHE-1298533

PATIENT
  Sex: Female

DRUGS (3)
  1. LUCENTIS [Suspect]
     Indication: AGE-RELATED MACULAR DEGENERATION
     Route: 050
     Dates: start: 20131022, end: 20131022
  2. TENORMIN [Concomitant]
     Route: 065
  3. CARDIRENE [Concomitant]
     Route: 065

REACTIONS (2)
  - Hypertensive crisis [Recovering/Resolving]
  - Tachycardia [Recovering/Resolving]
